FAERS Safety Report 5445876-4 (Version None)
Quarter: 2007Q3

REPORT INFORMATION
  Report Type: 
  Country: None (occurrence: None)
  Receive Date: 20070904
  Receipt Date: 20070820
  Transmission Date: 20080115
  Serious: Yes (Life-Threatening, Hospitalization)
  Sender: FDA-Public Use
  Company Number: 2007-02313

PATIENT
  Age: 58 Year
  Sex: Male
  Weight: 68 kg

DRUGS (3)
  1. VELCADE [Suspect]
     Indication: MULTIPLE MYELOMA
     Dosage: 2200 MG, INTRAVENOUS
     Route: 042
     Dates: start: 20070301, end: 20070601
  2. DEXAMETHASONE 0.5MG TAB [Concomitant]
  3. LEVOCARNIL (LEVOCARNITINE) [Concomitant]

REACTIONS (5)
  - BRONCHIAL DISORDER [None]
  - ENCEPHALOPATHY [None]
  - LUNG DISORDER [None]
  - PARAESTHESIA [None]
  - RESPIRATORY DISORDER [None]
